FAERS Safety Report 7956068-9 (Version None)
Quarter: 2011Q4

REPORT INFORMATION
  Report Type: 
  Country: None (occurrence: None)
  Receive Date: 20111205
  Receipt Date: 20111129
  Transmission Date: 20120403
  Serious: No
  Sender: FDA-Public Use
  Company Number: US-PFIZER INC-2011293310

PATIENT
  Sex: Female

DRUGS (5)
  1. CODEINE [Concomitant]
  2. BUTALBITAL, ACETAMINOPHEN, AND CAFFEINE [Suspect]
     Dosage: (50/325/40 MG TOOK UP TO 3 TIMES A DAY
  3. FLUOXETINE HYDROCHLORIDE [Suspect]
     Dosage: UNK
  4. ACETAMINOPHEN [Concomitant]
     Dosage: UNK
  5. IBUPROFEN [Suspect]
     Dosage: UNK

REACTIONS (1)
  - DRUG EFFECT DECREASED [None]
